FAERS Safety Report 5604473-8 (Version None)
Quarter: 2008Q1

REPORT INFORMATION
  Report Type: 
  Country: None (occurrence: None)
  Receive Date: 20080128
  Receipt Date: 20080118
  Transmission Date: 20080703
  Serious: Yes (Other)
  Sender: FDA-Public Use
  Company Number: US-ROCHE-542019

PATIENT
  Age: 52 Year
  Sex: Female

DRUGS (2)
  1. BONIVA [Suspect]
     Indication: OSTEOPOROSIS
     Route: 048
     Dates: start: 20080105
  2. FEMARA [Concomitant]

REACTIONS (2)
  - INFLUENZA LIKE ILLNESS [None]
  - TUMOUR MARKER INCREASED [None]
